FAERS Safety Report 9941862 (Version 2)
Quarter: 2014Q1

REPORT INFORMATION
  Report Type: Report from Study
  Country: US (occurrence: US)
  Receive Date: 20140303
  Receipt Date: 20140303
  Transmission Date: 20141002
  Serious: No
  Sender: FDA-Public Use
  Company Number: US-ABBVIE-13P-163-1030170-00

PATIENT
  Age: 34 Year
  Sex: Female

DRUGS (9)
  1. HUMIRA [Suspect]
     Indication: ANKYLOSING SPONDYLITIS
     Dates: start: 20120410
  2. CYMBALTA [Concomitant]
     Indication: DEPRESSION
  3. LYRICA [Concomitant]
     Indication: PAIN
  4. VICODIN [Concomitant]
     Indication: PAIN
  5. TRAMADOL [Concomitant]
     Indication: PAIN
  6. MELOXICAM [Concomitant]
     Indication: RHEUMATOID ARTHRITIS
  7. ZANAFLEX [Concomitant]
     Indication: HYPERTENSION
  8. VITAMIN D NOS [Concomitant]
     Indication: PRODUCT USED FOR UNKNOWN INDICATION
  9. CLOBETASOL PROPIONATE [Concomitant]
     Indication: PRODUCT USED FOR UNKNOWN INDICATION

REACTIONS (10)
  - Pulmonary oedema [Unknown]
  - Pyrexia [Unknown]
  - Nasopharyngitis [Unknown]
  - Rash macular [Unknown]
  - Nasopharyngitis [Unknown]
  - Dyspnoea [Unknown]
  - Rash [Unknown]
  - Pulmonary oedema [Not Recovered/Not Resolved]
  - Cough [Not Recovered/Not Resolved]
  - Respiratory tract infection [Not Recovered/Not Resolved]
